FAERS Safety Report 25423660 (Version 1)
Quarter: 2025Q2

REPORT INFORMATION
  Report Type: Spontaneous
  Country: US (occurrence: US)
  Receive Date: 20250611
  Receipt Date: 20250611
  Transmission Date: 20250716
  Serious: Yes (Other)
  Sender: AMGEN
  Company Number: US-AMGEN-USASP2025110784

PATIENT
  Sex: Female

DRUGS (1)
  1. REPATHA [Suspect]
     Active Substance: EVOLOCUMAB
     Indication: Product used for unknown indication
     Route: 058
     Dates: start: 2024

REACTIONS (6)
  - Blindness [Unknown]
  - Injection site mass [Unknown]
  - Pain in extremity [Unknown]
  - Diarrhoea [Unknown]
  - Constipation [Unknown]
  - Injection site bruising [Unknown]
